FAERS Safety Report 5201857-7 (Version None)
Quarter: 2006Q4

REPORT INFORMATION
  Report Type: 
  Country: None (occurrence: None)
  Receive Date: 20061003
  Receipt Date: 20060710
  Transmission Date: 20070319
  Serious: Yes (Hospitalization, Other)
  Sender: FDA-Public Use
  Company Number: 2006-0009859

PATIENT
  Age: 66 Year
  Sex: Male

DRUGS (3)
  1. EMTRICITABINE/TENOFOVIR DISOPROXIL FUMARATE (TABLET) [Suspect]
     Indication: HIV INFECTION
  2. LEVIXA (FOSAMPRENAVIR) (TABLET) [Suspect]
     Indication: HIV INFECTION
  3. IBUPROFEN [Suspect]

REACTIONS (2)
  - INFECTION [None]
  - RENAL FAILURE ACUTE [None]
